FAERS Safety Report 13903458 (Version 1)
Quarter: 2017Q3

REPORT INFORMATION
  Report Type: Spontaneous
  Country: US (occurrence: US)
  Receive Date: 20170824
  Receipt Date: 20170824
  Transmission Date: 20171127
  Serious: No
  Sender: FDA-Public Use
  Company Number: US-PFIZER INC-2017363206

PATIENT
  Age: 55 Year
  Sex: Female

DRUGS (2)
  1. GABAPENTIN. [Suspect]
     Active Substance: GABAPENTIN
     Dosage: UNK
  2. CELECOXIB. [Suspect]
     Active Substance: CELECOXIB
     Dosage: UNK

REACTIONS (8)
  - Joint crepitation [Unknown]
  - Bone swelling [Unknown]
  - Nausea [Unknown]
  - Neck pain [Unknown]
  - Joint range of motion decreased [Unknown]
  - Myalgia [Unknown]
  - Arthralgia [Unknown]
  - Joint swelling [Unknown]
